FAERS Safety Report 5235681-6 (Version None)
Quarter: 2007Q1

REPORT INFORMATION
  Report Type: 
  Country: None (occurrence: None)
  Receive Date: 20061208
  Receipt Date: 20060714
  Transmission Date: 20070707
  Serious: Yes (Other)
  Sender: FDA-Public Use
  Company Number: 2006UW14476

PATIENT
  Age: 52 Year
  Sex: Female
  Weight: 58.967 kg

DRUGS (2)
  1. CRESTOR [Suspect]
     Indication: LOW DENSITY LIPOPROTEIN INCREASED
     Dosage: 10 MG QOD PO
     Route: 048
  2. XANAX [Concomitant]

REACTIONS (3)
  - NIPPLE DISORDER [None]
  - NIPPLE PAIN [None]
  - THELITIS [None]
